FAERS Safety Report 7070457-9 (Version None)
Quarter: 2010Q4

REPORT INFORMATION
  Report Type: 
  Country: None (occurrence: None)
  Receive Date: 20101028
  Receipt Date: 20101028
  Transmission Date: 20110411
  Serious: No
  Sender: FDA-Public Use
  Company Number: None

PATIENT
  Sex: Female
  Weight: 68.4932 kg

DRUGS (1)
  1. AMLODIPINE [Suspect]
     Dosage: 1 DAILEY DAILY MOUTH 1/2 DAILEY DAILY MOUTH
     Route: 048
     Dates: start: 20100503

REACTIONS (3)
  - FLUSHING [None]
  - HEART RATE INCREASED [None]
  - RASH PRURITIC [None]
